FAERS Safety Report 14309633 (Version 1)
Quarter: 2017Q4

REPORT INFORMATION
  Report Type: Spontaneous
  Country: GB (occurrence: GB)
  Receive Date: 20171220
  Receipt Date: 20171220
  Transmission Date: 20180321
  Serious: Yes (Other)
  Sender: FDA-Public Use
  Company Number: GB-TEVA-2017-GB-835110

PATIENT
  Age: 49 Year
  Sex: Male
  Weight: 70 kg

DRUGS (3)
  1. WARFARIN [Suspect]
     Active Substance: WARFARIN
     Indication: AORTIC VALVE REPLACEMENT
     Route: 048
  2. GENERICS UK BISOPROLOL [Concomitant]
  3. LYMECYCLINE [Suspect]
     Active Substance: LYMECYCLINE
     Indication: FOLLICULITIS
     Route: 048

REACTIONS (4)
  - Haematemesis [Unknown]
  - Syncope [Unknown]
  - Dizziness [Unknown]
  - Oesophageal ulcer haemorrhage [Recovering/Resolving]
